FAERS Safety Report 17838603 (Version 1)
Quarter: 2020Q2

REPORT INFORMATION
  Report Type: Spontaneous
  Country: ES (occurrence: ES)
  Receive Date: 20200528
  Receipt Date: 20200528
  Transmission Date: 20200714
  Serious: Yes (Other)
  Sender: FDA-Public Use
  Company Number: NVSC2020ES145634

PATIENT
  Age: 55 Year
  Sex: Female

DRUGS (4)
  1. AMOXICILLIN. [Suspect]
     Active Substance: AMOXICILLIN
     Indication: BRONCHITIS
     Dosage: 1 G, QD
     Route: 065
  2. BROMURO DE IPRATROPIO [Suspect]
     Active Substance: IPRATROPIUM BROMIDE
     Indication: BRONCHITIS
     Dosage: UNK
     Route: 065
  3. CARBOCISTEINA [Suspect]
     Active Substance: CARBOCYSTEINE
     Indication: BRONCHITIS
     Dosage: UNK
     Route: 065
  4. BUDESONIDA ALDO UNION [Suspect]
     Active Substance: BUDESONIDE
     Indication: BRONCHITIS
     Dosage: UNK
     Route: 065

REACTIONS (3)
  - Oropharyngeal oedema [Unknown]
  - Lip oedema [Unknown]
  - Urticaria [Unknown]
